FAERS Safety Report 21259141 (Version 1)
Quarter: 2022Q3

REPORT INFORMATION
  Report Type: Spontaneous
  Country: GB (occurrence: GB)
  Receive Date: 20220826
  Receipt Date: 20220826
  Transmission Date: 20221026
  Serious: Yes (Hospitalization, Other)
  Sender: FDA-Public Use
  Company Number: GB-VIIV HEALTHCARE LIMITED-GB2022EME121716

PATIENT

DRUGS (10)
  1. DOLUTEGRAVIR [Suspect]
     Active Substance: DOLUTEGRAVIR
     Indication: Disseminated tuberculosis
     Dosage: 50 MG
  2. DOLUTEGRAVIR [Suspect]
     Active Substance: DOLUTEGRAVIR
     Indication: HIV infection
  3. TRIUMEQ [Suspect]
     Active Substance: ABACAVIR SULFATE\DOLUTEGRAVIR SODIUM\LAMIVUDINE
     Indication: Disseminated tuberculosis
     Dosage: UNK
  4. TRIUMEQ [Suspect]
     Active Substance: ABACAVIR SULFATE\DOLUTEGRAVIR SODIUM\LAMIVUDINE
     Indication: HIV infection
  5. MOXIFLOXACIN [Suspect]
     Active Substance: MOXIFLOXACIN
     Indication: Disseminated tuberculosis
     Dosage: 400 MG, QD
     Dates: start: 20210708, end: 20220110
  6. METHADONE [Suspect]
     Active Substance: METHADONE HYDROCHLORIDE
     Indication: Drug abuser
     Dosage: 40 MG, QD
  7. ISONIAZID [Suspect]
     Active Substance: ISONIAZID
     Indication: Disseminated tuberculosis
     Dosage: 300 MG, QD
     Dates: start: 20210708
  8. RIFABUTIN [Suspect]
     Active Substance: RIFABUTIN
     Indication: Disseminated tuberculosis
     Dosage: 300 MG, QD
     Dates: start: 20210708
  9. PYRAZINAMIDE [Suspect]
     Active Substance: PYRAZINAMIDE
     Indication: Disseminated tuberculosis
     Dosage: UNK
     Dates: start: 20210708, end: 20210909
  10. THIAMINE HYDROCHLORIDE [Suspect]
     Active Substance: THIAMINE HYDROCHLORIDE
     Indication: Product used for unknown indication
     Dosage: 100 MG, TID

REACTIONS (10)
  - Hospitalisation [Unknown]
  - Pathogen resistance [Unknown]
  - Immunosuppression [Unknown]
  - SARS-CoV-2 test positive [Unknown]
  - Blood HIV RNA increased [Unknown]
  - Viral mutation identified [Unknown]
  - Exposure during pregnancy [Unknown]
  - Product use in unapproved indication [Unknown]
  - Treatment noncompliance [Unknown]
  - Product dose omission issue [Unknown]

NARRATIVE: CASE EVENT DATE: 20210701
